FAERS Safety Report 7234779-0 (Version None)
Quarter: 2011Q1

REPORT INFORMATION
  Report Type: 
  Country: None (occurrence: None)
  Receive Date: 20110120
  Receipt Date: 20110112
  Transmission Date: 20110831
  Serious: Yes (Hospitalization, Other)
  Sender: FDA-Public Use
  Company Number: GB-TEVA-263269ISR

PATIENT
  Age: 34 Year
  Sex: Male

DRUGS (7)
  1. CITALOPRAM [Suspect]
  2. PANADEINE CO [Suspect]
  3. DIAZEPAM [Suspect]
  4. TEMAZEPAM [Suspect]
  5. AMLODIPINE [Suspect]
  6. DOXAZOSIN [Suspect]
  7. PERINDOPRIL [Suspect]

REACTIONS (3)
  - MULTIPLE DRUG OVERDOSE [None]
  - TOXICITY TO VARIOUS AGENTS [None]
  - METABOLIC ACIDOSIS [None]
